FAERS Safety Report 5886391-3 (Version None)
Quarter: 2008Q3

REPORT INFORMATION
  Report Type: 
  Country: None (occurrence: None)
  Receive Date: 20080818
  Receipt Date: 20071214
  Transmission Date: 20090109
  Serious: No
  Sender: FDA-Public Use
  Company Number: 20074366

PATIENT
  Sex: Male

DRUGS (1)
  1. LIORESAL [Suspect]
     Indication: MUSCLE SPASTICITY
     Dosage: 238.76 MCG DAILY INTRATHECAL
     Route: 037

REACTIONS (6)
  - CHILLS [None]
  - DRUG INEFFECTIVE [None]
  - HEADACHE [None]
  - HYPERTONIA [None]
  - PYREXIA [None]
  - VOMITING [None]
